FAERS Safety Report 9793020 (Version 1)
Quarter: 2013Q4

REPORT INFORMATION
  Report Type: Spontaneous
  Country: US (occurrence: None)
  Receive Date: 20131231
  Receipt Date: 20131231
  Transmission Date: 20140711
  Serious: No
  Sender: FDA-Public Use
  Company Number: None

PATIENT
  Age: 67 Year
  Sex: Female
  Weight: 104.33 kg

DRUGS (2)
  1. AMPHETAMINE SALTS [Suspect]
     Indication: ATTENTION DEFICIT/HYPERACTIVITY DISORDER
     Route: 048
     Dates: start: 20131223
  2. AMPHETAMINE SALTS [Suspect]
     Indication: DEPRESSION
     Route: 048
     Dates: start: 20131223

REACTIONS (2)
  - Drug ineffective [None]
  - Anxiety [None]
